FAERS Safety Report 17355858 (Version 2)
Quarter: 2020Q1

REPORT INFORMATION
  Report Type: Spontaneous
  Country: US (occurrence: US)
  Receive Date: 20200131
  Receipt Date: 20200221
  Transmission Date: 20200409
  Serious: No
  Sender: FDA-Public Use
  Company Number: US-SA-2020SA023856

PATIENT
  Age: 30 Year
  Sex: Female
  Weight: 56.9 kg

DRUGS (1)
  1. DUPIXENT [Suspect]
     Active Substance: DUPILUMAB
     Indication: DERMATITIS ATOPIC
     Dosage: 300 MG, QOW
     Route: 058
     Dates: start: 20170801

REACTIONS (3)
  - Lip swelling [Unknown]
  - Food allergy [Unknown]
  - Throat irritation [Unknown]
